FAERS Safety Report 9882507 (Version 2)
Quarter: 2014Q1

REPORT INFORMATION
  Report Type: Report from Study
  Country: AU (occurrence: AU)
  Receive Date: 20140207
  Receipt Date: 20140226
  Transmission Date: 20141002
  Serious: Yes (Death)
  Sender: FDA-Public Use
  Company Number: AU-BRISTOL-MYERS SQUIBB COMPANY-20142782

PATIENT
  Sex: 0

DRUGS (1)
  1. YERVOY [Suspect]

REACTIONS (1)
  - Malignant neoplasm progression [Fatal]
